FAERS Safety Report 11897179 (Version 1)
Quarter: 2016Q1

REPORT INFORMATION
  Report Type: Spontaneous
  Country: US (occurrence: US)
  Receive Date: 20160107
  Receipt Date: 20160107
  Transmission Date: 20160526
  Serious: Yes (Death, Hospitalization)
  Sender: FDA-Public Use
  Company Number: US-GALENA BIOPHARMA-1046278

PATIENT
  Age: 75 Year
  Sex: Male
  Weight: 59.09 kg

DRUGS (8)
  1. ABSTRAL [Suspect]
     Active Substance: FENTANYL CITRATE
     Indication: BREAKTHROUGH PAIN
     Route: 060
     Dates: start: 20151015
  2. TAXOTERE [Concomitant]
     Active Substance: DOCETAXEL
  3. FLUOROURACIL. [Concomitant]
     Active Substance: FLUOROURACIL
  4. DILAUDID [Concomitant]
     Active Substance: HYDROMORPHONE HYDROCHLORIDE
  5. ALLEGRA [Concomitant]
     Active Substance: FEXOFENADINE HYDROCHLORIDE
  6. CISPLATIN. [Concomitant]
     Active Substance: CISPLATIN
  7. FENTANYL. [Concomitant]
     Active Substance: FENTANYL
  8. DEXAMETHASONE. [Concomitant]
     Active Substance: DEXAMETHASONE
     Route: 048

REACTIONS (2)
  - Febrile neutropenia [Fatal]
  - Fall [Not Recovered/Not Resolved]

NARRATIVE: CASE EVENT DATE: 20151019
